FAERS Safety Report 8271087-3 (Version None)
Quarter: 2012Q2

REPORT INFORMATION
  Report Type: 
  Country: None (occurrence: None)
  Receive Date: 20120410
  Receipt Date: 20120403
  Transmission Date: 20120825
  Serious: Yes (Other)
  Sender: FDA-Public Use
  Company Number: US-PFIZER INC-2012084517

PATIENT
  Sex: Female

DRUGS (3)
  1. CYANOCOBALAMIN [Suspect]
     Dosage: UNK
  2. FOLIC ACID [Suspect]
     Dosage: UNK
  3. NIACIN [Concomitant]
     Dosage: UNK

REACTIONS (2)
  - PALPITATIONS [None]
  - DRUG HYPERSENSITIVITY [None]
